FAERS Safety Report 8899880 (Version 3)
Quarter: 2012Q4

REPORT INFORMATION
  Report Type: 
  Country: DE (occurrence: DE)
  Receive Date: 20121109
  Receipt Date: 20121128
  Transmission Date: 20130627
  Serious: Yes (Hospitalization)
  Sender: FDA-Public Use
  Company Number: PHHO2012DE016104

PATIENT
  Sex: Male
  Weight: 74 kg

DRUGS (3)
  1. FTY [Suspect]
     Indication: RELAPSING-REMITTING MULTIPLE SCLEROSIS
     Dosage: 0.5 mg, UNK
     Route: 048
     Dates: start: 20121106, end: 20121106
  2. FAMPYRA [Concomitant]
     Indication: GAIT DISTURBANCE
     Dosage: 10 mg, BID
     Route: 048
     Dates: start: 20120801
  3. TOVIAZ [Concomitant]
     Indication: RENAL FAILURE
     Dosage: 4 mg, UNK
     Route: 048
     Dates: start: 20120830

REACTIONS (2)
  - Bradycardia [Recovered/Resolved]
  - Electrocardiogram QT prolonged [Not Recovered/Not Resolved]
